FAERS Safety Report 11243258 (Version 3)
Quarter: 2015Q3

REPORT INFORMATION
  Report Type: Report from Study
  Country: US (occurrence: US)
  Receive Date: 20150707
  Receipt Date: 20150918
  Transmission Date: 20151125
  Serious: Yes (Hospitalization, Other)
  Sender: FDA-Public Use
  Company Number: US-GILEAD-2015-0162050

PATIENT
  Age: 46 Year
  Sex: Female
  Weight: 68 kg

DRUGS (8)
  1. REMODULIN [Concomitant]
     Active Substance: TREPROSTINIL
     Dosage: .092 UG/KG, UNK
     Route: 042
     Dates: start: 20131211
  2. REVATIO [Concomitant]
     Active Substance: SILDENAFIL CITRATE
  3. REMODULIN [Concomitant]
     Active Substance: TREPROSTINIL
     Indication: PULMONARY HYPERTENSION
     Dosage: .092 UG/KG, UNK
     Route: 041
     Dates: start: 20140713
  4. REMODULIN [Concomitant]
     Active Substance: TREPROSTINIL
     Dosage: .022 UG/KG, UNK
     Route: 042
  5. AMBRISENTAN [Suspect]
     Active Substance: AMBRISENTAN
     Dosage: UNK UNKNOWN, UNK
     Route: 065
  6. REMODULIN [Concomitant]
     Active Substance: TREPROSTINIL
     Dosage: .092 UG/KG, UNK
     Route: 042
     Dates: start: 20140806
  7. AMBRISENTAN [Suspect]
     Active Substance: AMBRISENTAN
     Indication: PULMONARY HYPERTENSION
     Dosage: 10 MG, QD
     Route: 042
     Dates: start: 20130404
  8. AMBRISENTAN [Suspect]
     Active Substance: AMBRISENTAN
     Dosage: 5 MG, QD
     Route: 065
     Dates: start: 20110209

REACTIONS (3)
  - Central venous catheterisation [Unknown]
  - Pancreatitis [Unknown]
  - Renal failure [Unknown]
